FAERS Safety Report 20327660 (Version 1)
Quarter: 2022Q1

REPORT INFORMATION
  Report Type: Spontaneous
  Country: GR (occurrence: GR)
  Receive Date: 20220112
  Receipt Date: 20220112
  Transmission Date: 20220423
  Serious: Yes (Other)
  Sender: FDA-Public Use
  Company Number: GR-SA-SAC20220107000126

PATIENT
  Sex: Male

DRUGS (2)
  1. HYDROCHLOROTHIAZIDE\IRBESARTAN [Suspect]
     Active Substance: HYDROCHLOROTHIAZIDE\IRBESARTAN
  2. IRBESARTAN [Concomitant]
     Active Substance: IRBESARTAN

REACTIONS (3)
  - Major depression [Unknown]
  - Abnormal behaviour [Unknown]
  - Hypertension [Unknown]
